FAERS Safety Report 14017787 (Version 4)
Quarter: 2017Q4

REPORT INFORMATION
  Report Type: Report from Study
  Country: FI (occurrence: FI)
  Receive Date: 20170927
  Receipt Date: 20171025
  Transmission Date: 20180321
  Serious: Yes (Hospitalization, Other)
  Sender: FDA-Public Use
  Company Number: FI-MYLANLABS-2017M1057035

PATIENT
  Age: 37 Year
  Sex: Female

DRUGS (7)
  1. MINIRIN [Suspect]
     Active Substance: DESMOPRESSIN ACETATE
     Indication: DIABETES INSIPIDUS
     Dosage: UNK
     Dates: start: 198301
  2. LEPONEX [Suspect]
     Active Substance: CLOZAPINE
     Indication: SCHIZOPHRENIA
     Dosage: UNK
     Dates: start: 1998, end: 2017
  3. LAMICTAL [Concomitant]
     Active Substance: LAMOTRIGINE
     Indication: PRODUCT USED FOR UNKNOWN INDICATION
     Dosage: UNK
  4. LEPONEX [Suspect]
     Active Substance: CLOZAPINE
     Dosage: UNK
     Dates: start: 20170905
  5. MINIRIN [Suspect]
     Active Substance: DESMOPRESSIN ACETATE
     Dosage: UNK, BID
  6. LEPONEX [Suspect]
     Active Substance: CLOZAPINE
     Dosage: UNK UNK, QD
     Dates: start: 201706, end: 201708
  7. LEPONEX [Suspect]
     Active Substance: CLOZAPINE
     Dosage: UNK
     Dates: start: 20170907

REACTIONS (6)
  - Psychotic symptom [Recovered/Resolved]
  - Hypernatraemia [Recovered/Resolved]
  - Transferrin increased [Unknown]
  - Iron deficiency anaemia [Recovering/Resolving]
  - Therapy cessation [Recovered/Resolved]
  - Product availability issue [Recovered/Resolved]

NARRATIVE: CASE EVENT DATE: 2017
